FAERS Safety Report 8205118-3 (Version None)
Quarter: 2012Q1

REPORT INFORMATION
  Report Type: 
  Country: None (occurrence: None)
  Receive Date: 20120313
  Receipt Date: 20120308
  Transmission Date: 20120608
  Serious: Yes (Hospitalization)
  Sender: FDA-Public Use
  Company Number: US-GLAXOSMITHKLINE-A0906694A

PATIENT
  Age: 62 Year
  Sex: Male

DRUGS (1)
  1. AVANDIA [Suspect]
     Indication: DIABETES MELLITUS
     Dosage: 8MG PER DAY
     Route: 048
     Dates: start: 20081218

REACTIONS (10)
  - LOSS OF CONSCIOUSNESS [None]
  - FALL [None]
  - RENAL FAILURE ACUTE [None]
  - SYNCOPE [None]
  - WEIGHT DECREASED [None]
  - MOTION SICKNESS [None]
  - BALANCE DISORDER [None]
  - SUPRAVENTRICULAR TACHYCARDIA [None]
  - NAUSEA [None]
  - VOMITING [None]
